FAERS Safety Report 7599814-9 (Version None)
Quarter: 2011Q3

REPORT INFORMATION
  Report Type: 
  Country: None (occurrence: None)
  Receive Date: 20110711
  Receipt Date: 20110512
  Transmission Date: 20111222
  Serious: No
  Sender: FDA-Public Use
  Company Number: A0927157A

PATIENT
  Age: 50 Year
  Sex: Male

DRUGS (2)
  1. REQUIP XL [Suspect]
     Indication: PARKINSON'S DISEASE
     Dosage: 4MG AT NIGHT
     Route: 048
     Dates: start: 20110301
  2. SINEMET [Concomitant]

REACTIONS (4)
  - INAPPROPRIATE SCHEDULE OF DRUG ADMINISTRATION [None]
  - DRUG INTERACTION [None]
  - DYSKINESIA [None]
  - THERAPEUTIC RESPONSE DECREASED [None]
